FAERS Safety Report 11735686 (Version 3)
Quarter: 2016Q1

REPORT INFORMATION
  Report Type: Spontaneous
  Country: US (occurrence: US)
  Receive Date: 20151113
  Receipt Date: 20160210
  Transmission Date: 20160525
  Serious: No
  Sender: FDA-Public Use
  Company Number: US-JNJFOC-20151018188

PATIENT
  Age: 69 Year
  Sex: Male

DRUGS (6)
  1. RISPERDAL CONSTA [Suspect]
     Active Substance: RISPERIDONE
     Indication: SCHIZOPHRENIA
     Route: 030
     Dates: start: 20120424
  2. QUETIAPINE [Concomitant]
     Active Substance: QUETIAPINE
     Indication: SCHIZOPHRENIA
     Route: 065
     Dates: start: 20120514
  3. LISINOPRIL. [Concomitant]
     Active Substance: LISINOPRIL
     Indication: HYPERTENSION
     Route: 065
     Dates: start: 20150408
  4. OMEPRAZOLE. [Concomitant]
     Active Substance: OMEPRAZOLE
     Indication: GASTROOESOPHAGEAL REFLUX DISEASE
     Route: 065
     Dates: start: 20120814
  5. DISULFIRAM. [Concomitant]
     Active Substance: DISULFIRAM
     Indication: ALCOHOL ABUSE
     Route: 065
     Dates: start: 20140403
  6. IBUPROFEN. [Concomitant]
     Active Substance: IBUPROFEN
     Indication: INFLAMMATORY PAIN
     Dosage: ONE DOSE IN 8 HOURS ON AS NEEDED BASIS
     Route: 065
     Dates: start: 20150701, end: 20150721

REACTIONS (3)
  - Schizophrenia [Unknown]
  - Wrong technique in product usage process [Unknown]
  - Procedural complication [Unknown]

NARRATIVE: CASE EVENT DATE: 20151022
